FAERS Safety Report 4412126-7 (Version None)
Quarter: 2004Q3

REPORT INFORMATION
  Report Type: 
  Country: None (occurrence: None)
  Receive Date: 20040730
  Receipt Date: 20040721
  Transmission Date: 20050211
  Serious: Yes (Disabling)
  Sender: FDA-Public Use
  Company Number: DZ-GLAXOSMITHKLINE-B0340827A

PATIENT
  Age: 43 Year
  Sex: Female

DRUGS (1)
  1. SEREVENT [Suspect]
     Indication: ASTHMA
     Dosage: 50MCG UNKNOWN
     Route: 055
     Dates: start: 20040329, end: 20040415

REACTIONS (4)
  - ARTHRALGIA [None]
  - DECREASED ACTIVITY [None]
  - INSOMNIA [None]
  - PAIN [None]
